FAERS Safety Report 6145067-8 (Version None)
Quarter: 2009Q2

REPORT INFORMATION
  Report Type: 
  Country: None (occurrence: None)
  Receive Date: 20090401
  Receipt Date: 20090401
  Transmission Date: 20091009
  Serious: Yes (Other)
  Sender: FDA-Public Use
  Company Number: None

PATIENT
  Age: 46 Year
  Sex: Female
  Weight: 47.1741 kg

DRUGS (2)
  1. FOSAMAX [Suspect]
     Indication: OSTEOPOROSIS
     Dosage: WEEKLY PO
     Route: 048
     Dates: start: 20050915, end: 20060630
  2. ACTONEL [Suspect]
     Indication: OSTEOPOROSIS
     Dosage: WEEKLY PO
     Route: 048
     Dates: start: 20060912, end: 20080318

REACTIONS (8)
  - BACK PAIN [None]
  - BONE PAIN [None]
  - FEAR [None]
  - GAIT DISTURBANCE [None]
  - JOINT LOCK [None]
  - MOVEMENT DISORDER [None]
  - PAIN IN EXTREMITY [None]
  - VISION BLURRED [None]
